FAERS Safety Report 23880244 (Version 1)
Quarter: 2024Q2

REPORT INFORMATION
  Report Type: Spontaneous
  Country: US (occurrence: None)
  Receive Date: 20240521
  Receipt Date: 20240521
  Transmission Date: 20240716
  Serious: No
  Sender: FDA-Public Use
  Company Number: None

PATIENT
  Age: 77 Year
  Sex: 0

DRUGS (1)
  1. ZEJULA [Suspect]
     Active Substance: NIRAPARIB

REACTIONS (2)
  - Syncope [None]
  - Cytopenia [None]

NARRATIVE: CASE EVENT DATE: 20240521
